FAERS Safety Report 22049702 (Version 1)
Quarter: 2023Q1

REPORT INFORMATION
  Report Type: Spontaneous
  Country: US (occurrence: US)
  Receive Date: 20230301
  Receipt Date: 20230301
  Transmission Date: 20230418
  Serious: No
  Sender: FDA-Public Use
  Company Number: US-PFIZER INC-202300081270

PATIENT
  Sex: Female

DRUGS (2)
  1. LEVOXYL [Suspect]
     Active Substance: LEVOTHYROXINE SODIUM
     Dosage: 88 UG (88MCG AND 75 MCG, ALTERNATING DOSE)
  2. LEVOXYL [Suspect]
     Active Substance: LEVOTHYROXINE SODIUM
     Dosage: 75 UG (88MCG AND 75 MCG, ALTERNATING DOSE)

REACTIONS (2)
  - Bronchitis [Unknown]
  - Cough [Unknown]
